FAERS Safety Report 19770278 (Version 1)
Quarter: 2021Q3

REPORT INFORMATION
  Report Type: Report from Study
  Country: US (occurrence: US)
  Receive Date: 20210901
  Receipt Date: 20210901
  Transmission Date: 20211014
  Serious: Yes (Other)
  Sender: FDA-Public Use
  Company Number: US-BIOVITRUM-2020US6220

PATIENT
  Sex: Female

DRUGS (2)
  1. KINERET [Suspect]
     Active Substance: ANAKINRA
     Indication: RHEUMATOID ARTHRITIS
     Route: 058
     Dates: start: 20200811
  2. VACCINES [Suspect]
     Active Substance: UNSPECIFIED INGREDIENT

REACTIONS (10)
  - Glomerular filtration rate decreased [Unknown]
  - Rheumatoid arthritis [Unknown]
  - Nausea [Unknown]
  - Carcinoembryonic antigen increased [Unknown]
  - Herpes zoster [Unknown]
  - Cataract [Unknown]
  - Blood creatinine increased [Unknown]
  - Pericarditis [Unknown]
  - Pericardial fibrosis [Unknown]
  - Injection site reaction [Unknown]
